FAERS Safety Report 7110533-5 (Version None)
Quarter: 2010Q4

REPORT INFORMATION
  Report Type: 
  Country: None (occurrence: None)
  Receive Date: 20101118
  Receipt Date: 20101108
  Transmission Date: 20110411
  Serious: Yes (Life-Threatening, Hospitalization)
  Sender: FDA-Public Use
  Company Number: US-ROCHE-682407

PATIENT
  Sex: Female
  Weight: 92 kg

DRUGS (18)
  1. CAPECITABINE [Suspect]
     Indication: NEUROENDOCRINE CARCINOMA
     Dosage: DOSE: 2000 MG (AM) AND 1500 MG (PM), LAST DOSE PRIOR SAE: 16 JANUARY 2010,
     Route: 065
  2. BEVACIZUMAB [Suspect]
     Indication: NEUROENDOCRINE CARCINOMA
     Dosage: LAST DOSE PRIOR SAE: 04 JANUARY 2010.
     Route: 042
  3. BEVACIZUMAB [Suspect]
     Route: 042
     Dates: start: 20100920
  4. BEVACIZUMAB [Suspect]
     Dosage: 7.5 MG/KG.  ON DAY 1 OF 21 DAY CYCLE. LAST DOSE PRIOR TO SAE: 20 SEPTEMBER 2010.
     Route: 042
  5. OXALIPLATIN [Suspect]
     Indication: NEUROENDOCRINE CARCINOMA
     Route: 065
  6. LASIX [Concomitant]
     Route: 048
  7. VICODIN [Concomitant]
     Dosage: FREQUENCY: PRN. 5/500 MG.
     Route: 048
  8. HYDRODIURIL [Concomitant]
     Route: 048
  9. SANDOSTATIN LAR [Concomitant]
     Dosage: DRUG REPORTED AS: SANDOSTATIN LAR DEPOT.
     Route: 030
  10. ADVAIR DISKUS 100/50 [Concomitant]
     Route: 055
  11. LISINOPRIL [Concomitant]
     Route: 048
  12. ALBUTEROL [Concomitant]
     Dosage: FREQUENCY: PRN.
     Route: 055
  13. ADVIL [Concomitant]
     Dosage: FREQUENCY: PRN.
     Route: 048
  14. PRINZIDE [Concomitant]
     Dosage: DOSE: 20/12.5 MG, QD.
     Route: 048
  15. OCTREOTIDE ACETATE [Concomitant]
     Route: 058
  16. METOPROLOL [Concomitant]
  17. LORAZEPAM [Concomitant]
     Dosage: PRN
  18. AMIODARONE [Concomitant]

REACTIONS (6)
  - CHILLS [None]
  - DEHYDRATION [None]
  - DIZZINESS [None]
  - HYPOTENSION [None]
  - UMBILICAL HERNIA, OBSTRUCTIVE [None]
  - WOUND DEHISCENCE [None]
